FAERS Safety Report 9049012 (Version 1)
Quarter: 2013Q1

REPORT INFORMATION
  Report Type: Spontaneous
  Country: US (occurrence: None)
  Receive Date: 20130129
  Receipt Date: 20130129
  Transmission Date: 20140127
  Serious: No
  Sender: FDA-Public Use
  Company Number: None

PATIENT
  Sex: Female

DRUGS (1)
  1. VENLAFAXINE ER [Suspect]
     Indication: DEPRESSION
     Dates: start: 201003, end: 201004

REACTIONS (2)
  - Constipation [None]
  - Product substitution issue [None]
